FAERS Safety Report 23563618 (Version 1)
Quarter: 2024Q1

REPORT INFORMATION
  Report Type: Report from Study
  Country: US (occurrence: US)
  Receive Date: 20240226
  Receipt Date: 20240226
  Transmission Date: 20240409
  Serious: Yes (Hospitalization, Other)
  Sender: FDA-Public Use
  Company Number: US-Merck Healthcare KGaA-2023494158

PATIENT
  Sex: Male

DRUGS (1)
  1. REBIF [Suspect]
     Active Substance: INTERFERON BETA-1A
     Indication: Multiple sclerosis
     Route: 058
     Dates: start: 20140505

REACTIONS (13)
  - Blood glucose decreased [Unknown]
  - Seizure [Unknown]
  - Fall [Unknown]
  - Feeling abnormal [Unknown]
  - Head injury [Unknown]
  - Foot deformity [Unknown]
  - Loss of consciousness [Unknown]
  - Dementia [Unknown]
  - Skin haemorrhage [Unknown]
  - Pain [Unknown]
  - Abdominal pain upper [Unknown]
  - Oropharyngeal pain [Unknown]
  - Pyrexia [Unknown]
